FAERS Safety Report 14109891 (Version 1)
Quarter: 2017Q4

REPORT INFORMATION
  Report Type: Spontaneous
  Country: US (occurrence: US)
  Receive Date: 20171020
  Receipt Date: 20171020
  Transmission Date: 20180321
  Serious: No
  Sender: FDA-Public Use
  Company Number: US-TEVA-743609ACC

PATIENT
  Age: 42 Year
  Sex: Female
  Weight: 79.45 kg

DRUGS (2)
  1. EQ MICON 7 DISPOSAL [Suspect]
     Active Substance: MICONAZOLE
     Route: 065
     Dates: start: 20170325, end: 20170330
  2. EQ MICON 7 DISPOSAL [Suspect]
     Active Substance: MICONAZOLE
     Indication: VAGINAL DISORDER
     Route: 065
     Dates: start: 20170122, end: 20170129

REACTIONS (2)
  - Rash [Unknown]
  - Drug ineffective [Unknown]

NARRATIVE: CASE EVENT DATE: 20170130
